FAERS Safety Report 8796690 (Version 4)
Quarter: 2012Q4

REPORT INFORMATION
  Report Type: Report from Study
  Country: DE (occurrence: DE)
  Receive Date: 20120919
  Receipt Date: 20121129
  Transmission Date: 20130627
  Serious: Yes (Hospitalization)
  Sender: FDA-Public Use
  Company Number: DE-TEVA-353695USA

PATIENT
  Age: 83 Year
  Sex: Male

DRUGS (2)
  1. TREANDA [Suspect]
     Indication: CHRONIC LYMPHOCYTIC LEUKAEMIA
     Route: 042
     Dates: start: 20120326, end: 20120704
  2. RITUXIMAB [Suspect]
     Dates: start: 20120423, end: 20120702

REACTIONS (2)
  - Liver injury [Unknown]
  - Atypical pneumonia [Recovered/Resolved with Sequelae]
